FAERS Safety Report 20593813 (Version 1)
Quarter: 2022Q1

REPORT INFORMATION
  Report Type: Report from Study
  Country: BR (occurrence: BR)
  Receive Date: 20220315
  Receipt Date: 20220315
  Transmission Date: 20220423
  Serious: Yes (Other)
  Sender: FDA-Public Use
  Company Number: BR-NOVARTISPH-NVSC2022BR058424

PATIENT
  Sex: Female

DRUGS (4)
  1. EXELON [Suspect]
     Active Substance: RIVASTIGMINE TARTRATE
     Indication: Product used for unknown indication
     Dosage: UNK
     Route: 065
  2. EXELON [Suspect]
     Active Substance: RIVASTIGMINE TARTRATE
     Dosage: 9.5 MG, QD PATCH 10 (CM2
     Route: 062
     Dates: start: 202112, end: 202112
  3. EXELON [Suspect]
     Active Substance: RIVASTIGMINE TARTRATE
     Indication: Product used for unknown indication
     Dosage: 3.0 MG
     Route: 065
     Dates: end: 202112
  4. EXELON [Suspect]
     Active Substance: RIVASTIGMINE TARTRATE
     Dosage: 4.5 MG
     Route: 065

REACTIONS (10)
  - Dementia Alzheimer^s type [Unknown]
  - Cognitive disorder [Unknown]
  - Application site hypersensitivity [Unknown]
  - Application site pruritus [Unknown]
  - Application site discolouration [Unknown]
  - Illness [Unknown]
  - Condition aggravated [Unknown]
  - Drug hypersensitivity [Recovered/Resolved]
  - Vomiting [Unknown]
  - Product availability issue [Unknown]
